FAERS Safety Report 5734427-2 (Version None)
Quarter: 2008Q2

REPORT INFORMATION
  Report Type: 
  Country: None (occurrence: None)
  Receive Date: 20080508
  Receipt Date: 20080508
  Transmission Date: 20081010
  Serious: Yes (Other)
  Sender: FDA-Public Use
  Company Number: None

PATIENT
  Age: 53 Year
  Sex: Female
  Weight: 81.6475 kg

DRUGS (1)
  1. PROHEALTH CREST PROCTOR AND GAMBLE [Suspect]
     Dosage: DAILY
     Dates: start: 20070815, end: 20070819

REACTIONS (3)
  - ANGER [None]
  - PHARMACEUTICAL PRODUCT COMPLAINT [None]
  - TOOTH DISCOLOURATION [None]
